FAERS Safety Report 15652195 (Version 1)
Quarter: 2018Q4

REPORT INFORMATION
  Report Type: Spontaneous
  Country: JP (occurrence: JP)
  Receive Date: 20181123
  Receipt Date: 20181123
  Transmission Date: 20190205
  Serious: Yes (Other)
  Sender: FDA-Public Use
  Company Number: PHJP2015JP012878

PATIENT
  Age: 76 Year
  Sex: Male

DRUGS (1)
  1. CARBAMAZEPINE. [Suspect]
     Active Substance: CARBAMAZEPINE
     Indication: TRIGEMINAL NEURALGIA
     Dosage: 100 MG, PRN
     Route: 048

REACTIONS (2)
  - Drug eruption [Recovered/Resolved]
  - Hypersensitivity [Unknown]
